FAERS Safety Report 9491140 (Version 1)
Quarter: 2013Q3

REPORT INFORMATION
  Report Type: Report from Study
  Country: SE (occurrence: SE)
  Receive Date: 20130830
  Receipt Date: 20130830
  Transmission Date: 20140515
  Serious: Yes (Other)
  Sender: FDA-Public Use
  Company Number: SE-ASTELLAS-2013EU007323

PATIENT
  Age: 10 Month
  Sex: Male

DRUGS (4)
  1. TACROLIMUS SYSTEMIC [Suspect]
     Indication: PROPHYLAXIS AGAINST GRAFT VERSUS HOST DISEASE
     Dosage: UNK
     Route: 065
  2. SIROLIMUS [Suspect]
     Indication: PROPHYLAXIS AGAINST GRAFT VERSUS HOST DISEASE
     Dosage: UNK
     Route: 065
  3. FLUDARABINE [Concomitant]
     Dosage: UNK
     Route: 065
  4. TREOSULFAN [Concomitant]
     Dosage: 14 G/M2, UNKNOWN/D
     Route: 065

REACTIONS (2)
  - Drug ineffective for unapproved indication [Unknown]
  - Graft versus host disease [Unknown]
